FAERS Safety Report 5632405-5 (Version None)
Quarter: 2008Q1

REPORT INFORMATION
  Report Type: 
  Country: None (occurrence: None)
  Receive Date: 20080220
  Receipt Date: 20080123
  Transmission Date: 20080703
  Serious: No
  Sender: FDA-Public Use
  Company Number: US-BOEHRINGER INGELHEIM GMBH, GERMANY-2008-BP-01586BP

PATIENT
  Age: 46 Year
  Sex: Female

DRUGS (1)
  1. METACAM ORAL SUSPENSION [Suspect]
     Route: 031
     Dates: start: 20071228

REACTIONS (3)
  - EYE IRRITATION [None]
  - MEDICATION ERROR [None]
  - OCULAR HYPERAEMIA [None]
